FAERS Safety Report 16642932 (Version 1)
Quarter: 2019Q3

REPORT INFORMATION
  Report Type: Spontaneous
  Country: US (occurrence: US)
  Receive Date: 20190728
  Receipt Date: 20190728
  Transmission Date: 20191004
  Serious: Yes (Hospitalization, Disabling, Other)
  Sender: FDA-Public Use
  Company Number: None

PATIENT
  Age: 25 Year
  Sex: Female
  Weight: 68.04 kg

DRUGS (2)
  1. NEXPLANON [Suspect]
     Active Substance: ETONOGESTREL
  2. BLACK COHOSH 10 MG [Concomitant]

REACTIONS (5)
  - Complication associated with device [None]
  - Blood testosterone increased [None]
  - Device malfunction [None]
  - Infertility female [None]
  - Ovarian cyst ruptured [None]

NARRATIVE: CASE EVENT DATE: 20181030
